FAERS Safety Report 14114064 (Version 1)
Quarter: 2017Q4

REPORT INFORMATION
  Report Type: Spontaneous
  Country: US (occurrence: US)
  Receive Date: 20171023
  Receipt Date: 20171023
  Transmission Date: 20180321
  Serious: No
  Sender: FDA-Public Use
  Company Number: US-BEH-2017084536

PATIENT
  Age: 21 Year
  Sex: Female
  Weight: 72.56 kg

DRUGS (8)
  1. MULTIVITAMINS [Concomitant]
     Active Substance: VITAMINS
     Route: 065
  2. SODIUM CHLORIDE. [Concomitant]
     Active Substance: SODIUM CHLORIDE
     Route: 065
  3. LMX                                /00033401/ [Concomitant]
     Route: 065
  4. COLCRYS [Concomitant]
     Active Substance: COLCHICINE
     Route: 065
  5. HEPARIN [Concomitant]
     Active Substance: HEPARIN SODIUM
     Route: 065
  6. EPIPEN [Concomitant]
     Active Substance: EPINEPHRINE
     Route: 065
  7. ZEMAIRA [Suspect]
     Active Substance: .ALPHA.1-PROTEINASE INHIBITOR HUMAN
     Indication: ALPHA-1 ANTI-TRYPSIN DEFICIENCY
     Dosage: 69 MG/KG, QW
     Route: 042
     Dates: start: 20170517
  8. DIPHENHYDRAMINE. [Concomitant]
     Active Substance: DIPHENHYDRAMINE
     Route: 065

REACTIONS (3)
  - Scab [Unknown]
  - Skin ulcer [Unknown]
  - Wound secretion [Unknown]

NARRATIVE: CASE EVENT DATE: 20171009
